FAERS Safety Report 4378631-7 (Version None)
Quarter: 2004Q2

REPORT INFORMATION
  Report Type: 
  Country: None (occurrence: None)
  Receive Date: 20040610
  Receipt Date: 20040603
  Transmission Date: 20050107
  Serious: Yes (Death, Life-Threatening)
  Sender: FDA-Public Use
  Company Number: 2004UW11496

PATIENT
  Age: 55 Year
  Sex: Male
  Weight: 85 kg

DRUGS (16)
  1. BUPIVACAINE [Suspect]
     Indication: ANALGESIC EFFECT
     Dosage: 187.5 MG TID ED
     Route: 008
  2. BUPIVACAINE [Suspect]
     Indication: HEPATECTOMY
     Dosage: 187.5 MG TID ED
     Route: 008
  3. LIDOCAINE [Suspect]
     Indication: ANAESTHESIA
     Dosage: 60 MG ONCE ED
     Route: 008
  4. LIDOCAINE [Suspect]
     Indication: HEPATECTOMY
     Dosage: 60 MG ONCE ED
     Route: 008
  5. PROPOFOL [Suspect]
     Indication: HEPATECTOMY
     Dosage: 150 MG ONCE ED
     Route: 008
  6. PROPOFOL [Suspect]
     Indication: INDUCTION OF ANAESTHESIA
     Dosage: 150 MG ONCE ED
     Route: 008
  7. MIDAZOLAM HCL [Suspect]
     Indication: INDUCTION OF ANAESTHESIA
     Dosage: 2 MG ONCE
  8. FENTANYL [Suspect]
     Indication: INDUCTION OF ANAESTHESIA
     Dosage: 100 UG ONCE
  9. ATRACURIUM BESYLATE [Suspect]
     Indication: INDUCTION OF ANAESTHESIA
     Dosage: 40 MG ONCE
  10. ATRACURIUM BESYLATE [Suspect]
     Indication: NEUROMUSCULAR BLOCKADE
     Dosage: 40 MG ONCE
  11. ATRACURIUM BESYLATE [Suspect]
     Indication: INDUCTION OF ANAESTHESIA
     Dosage: 0.5 MG/KG HR
  12. ATRACURIUM BESYLATE [Suspect]
     Indication: NEUROMUSCULAR BLOCKADE
     Dosage: 0.5 MG/KG HR
  13. ISOFLURANE [Suspect]
     Indication: ANAESTHESIA
     Dosage: 0.75% IN A 50% MIXTURE O2/N2O
  14. MORPHINE CHLORIDE [Suspect]
     Indication: ANALGESIC EFFECT
     Dosage: 3 MG ONCE ED
     Route: 008
  15. DIAZEPAM [Concomitant]
  16. RANITIDINE [Concomitant]

REACTIONS (13)
  - AUTONOMIC NERVOUS SYSTEM IMBALANCE [None]
  - BRADYCARDIA [None]
  - BRAIN DEATH [None]
  - CARDIAC ARREST [None]
  - HYPOTENSION [None]
  - LOSS OF CONSCIOUSNESS [None]
  - NAUSEA [None]
  - NECROSIS [None]
  - NERVOUS SYSTEM DISORDER [None]
  - POST PROCEDURAL HAEMORRHAGE [None]
  - PROCEDURAL COMPLICATION [None]
  - VENTRICULAR FIBRILLATION [None]
  - VOMITING [None]
